FAERS Safety Report 11744988 (Version 2)
Quarter: 2015Q4

REPORT INFORMATION
  Report Type: Spontaneous
  Country: IT (occurrence: IT)
  Receive Date: 20151117
  Receipt Date: 20151217
  Transmission Date: 20160304
  Serious: Yes (Hospitalization)
  Sender: FDA-Public Use
  Company Number: IT-ROCHE-1662041

PATIENT
  Age: 80 Year
  Sex: Male

DRUGS (11)
  1. CARVASIN [Concomitant]
     Active Substance: ISOSORBIDE DINITRATE
     Route: 065
  2. LUCENTIS [Suspect]
     Active Substance: RANIBIZUMAB
     Indication: NEOVASCULAR AGE-RELATED MACULAR DEGENERATION
     Route: 031
     Dates: start: 20150218
  3. TAVOR [Concomitant]
     Active Substance: LORAZEPAM
     Route: 065
  4. RANEXA [Concomitant]
     Active Substance: RANOLAZINE
     Route: 065
  5. CARDICOR [Concomitant]
     Active Substance: BISOPROLOL
     Route: 065
  6. NETILDEX (ITALY) [Concomitant]
     Dosage: DOSE: 1/3 MG/ML EYE DROPS
     Route: 065
  7. PANTORC [Concomitant]
     Active Substance: PANTOPRAZOLE SODIUM
     Route: 065
  8. ACETYLSALICYLIC ACID [Concomitant]
     Active Substance: ASPIRIN
     Route: 065
  9. LUCENTIS [Suspect]
     Active Substance: RANIBIZUMAB
     Route: 031
     Dates: start: 20151104
  10. TORVAST [Concomitant]
     Active Substance: ATORVASTATIN
     Route: 065
  11. DEPONIT [Concomitant]
     Active Substance: NITROGLYCERIN
     Dosage: PATCH
     Route: 065

REACTIONS (4)
  - Glycosylated haemoglobin increased [Unknown]
  - Blood glucose increased [Unknown]
  - Angina pectoris [Not Recovered/Not Resolved]
  - Basophil count increased [Unknown]

NARRATIVE: CASE EVENT DATE: 20151105
